FAERS Safety Report 21871217 (Version 1)
Quarter: 2023Q1

REPORT INFORMATION
  Report Type: Spontaneous
  Country: US (occurrence: None)
  Receive Date: 20230113
  Receipt Date: 20230113
  Transmission Date: 20230418
  Serious: No
  Sender: FDA-Public Use
  Company Number: None

PATIENT
  Age: 69 Year
  Sex: Female
  Weight: 60.78 kg

DRUGS (19)
  1. LENALIDOMIDE [Suspect]
     Active Substance: LENALIDOMIDE
     Indication: Plasma cell myeloma
     Dosage: OTHER FREQUENCY : 3W, 1W OFF;?
     Route: 048
     Dates: start: 20221214, end: 20230113
  2. ACETAMINOPHEN [Concomitant]
     Active Substance: ACETAMINOPHEN
  3. BACTRIM DS [Concomitant]
     Active Substance: SULFAMETHOXAZOLE\TRIMETHOPRIM
  4. CALCIUM [Concomitant]
     Active Substance: CALCIUM
  5. Daily Probiotic [Concomitant]
  6. Daily Value Multivitamin [Concomitant]
  7. DARZALEX [Concomitant]
     Active Substance: DARATUMUMAB
  8. DEXAMETHASONE [Concomitant]
     Active Substance: DEXAMETHASONE
  9. KLOR-CON [Concomitant]
     Active Substance: POTASSIUM CHLORIDE
  10. LEVOTHYROXINE [Concomitant]
     Active Substance: LEVOTHYROXINE
  11. OLANZAPINE [Concomitant]
     Active Substance: OLANZAPINE
  12. PAROXETINE [Concomitant]
     Active Substance: PAROXETINE
  13. POTASSIUM CHLORIDE [Concomitant]
     Active Substance: POTASSIUM CHLORIDE
  14. PREDNISONE [Concomitant]
     Active Substance: PREDNISONE
  15. PROCHLORPERAZINE [Concomitant]
     Active Substance: PROCHLORPERAZINE
  16. VALACYCLOVIR [Concomitant]
     Active Substance: VALACYCLOVIR HYDROCHLORIDE
  17. VELCADE [Concomitant]
     Active Substance: BORTEZOMIB
  18. VITAMIN D [Concomitant]
     Active Substance: VITAMIN D NOS
  19. XARELTO [Concomitant]
     Active Substance: RIVAROXABAN

REACTIONS (1)
  - Liver function test increased [None]
